FAERS Safety Report 10633036 (Version 1)
Quarter: 2014Q4

REPORT INFORMATION
  Report Type: Spontaneous
  Country: US (occurrence: US)
  Receive Date: 20141205
  Receipt Date: 20141205
  Transmission Date: 20150529
  Serious: No
  Sender: FDA-Public Use
  Company Number: US-BRISTOL-MYERS SQUIBB COMPANY-21345541

PATIENT
  Age: 90 Year
  Sex: Male

DRUGS (5)
  1. DILTIAZEM HCL [Concomitant]
     Active Substance: DILTIAZEM HYDROCHLORIDE
  2. AMIODARONE [Concomitant]
     Active Substance: AMIODARONE
  3. ELIQUIS [Suspect]
     Active Substance: APIXABAN
     Indication: THROMBOSIS PROPHYLAXIS
  4. DOXYCYCLINE. [Concomitant]
     Active Substance: DOXYCYCLINE
  5. CALCIUM [Concomitant]
     Active Substance: CALCIUM

REACTIONS (1)
  - Heart rate increased [Not Recovered/Not Resolved]
